FAERS Safety Report 7544862-8 (Version None)
Quarter: 2011Q2

REPORT INFORMATION
  Report Type: 
  Country: None (occurrence: None)
  Receive Date: 20110614
  Receipt Date: 20110513
  Transmission Date: 20111010
  Serious: Yes (Hospitalization, Other)
  Sender: FDA-Public Use
  Company Number: US-BAYER-2011-015999

PATIENT
  Age: 45 Year
  Sex: Female
  Weight: 92.971 kg

DRUGS (10)
  1. YAZ [Suspect]
     Indication: ACNE
     Dosage: UNK
     Dates: start: 20070101, end: 20080101
  2. YASMIN [Suspect]
     Indication: ACNE
  3. DROSPIRENONE AND ETHINYL ESTRADIOL [Suspect]
     Indication: ACNE
  4. YAZ [Suspect]
     Indication: CONTRACEPTION
  5. DIURETICS [Concomitant]
     Indication: WEIGHT INCREASED
     Dosage: UNK
     Dates: start: 19990101, end: 20090101
  6. ASCORBIC ACID [Concomitant]
  7. YAZ [Suspect]
     Indication: PREMENSTRUAL SYNDROME
  8. YAZ [Suspect]
  9. IBUPROFEN [Concomitant]
     Indication: PAIN IN EXTREMITY
     Dosage: UNK
     Dates: start: 19990101
  10. ZOLOFT [Concomitant]
     Dosage: 100 MG, UNK
     Dates: start: 19990101

REACTIONS (2)
  - GALLBLADDER DISORDER [None]
  - INJURY [None]
